FAERS Safety Report 4431160-4 (Version None)
Quarter: 2004Q3

REPORT INFORMATION
  Report Type: 
  Country: None (occurrence: None)
  Receive Date: 20040824
  Receipt Date: 20040811
  Transmission Date: 20050211
  Serious: Yes (Hospitalization)
  Sender: FDA-Public Use
  Company Number: FR-JNJFOC-20040803472

PATIENT
  Age: 40 Year
  Sex: Male

DRUGS (6)
  1. TRAMADOL HCL [Suspect]
     Indication: DRUG USE FOR UNKNOWN INDICATION
     Route: 049
  2. PRIMAXIN [Suspect]
  3. TIENAM [Interacting]
     Indication: DRUG USE FOR UNKNOWN INDICATION
  4. VFEND [Interacting]
     Indication: DRUG USE FOR UNKNOWN INDICATION
     Route: 049
  5. HEPARIN [Concomitant]
     Route: 058
  6. OMEPRAZOLE [Concomitant]

REACTIONS (4)
  - CYTOLYTIC HEPATITIS [None]
  - DRUG INTERACTION [None]
  - PROTHROMBIN TIME SHORTENED [None]
  - STATUS EPILEPTICUS [None]
